FAERS Safety Report 10380900 (Version 1)
Quarter: 2014Q3

REPORT INFORMATION
  Report Type: Spontaneous
  Country: US (occurrence: None)
  Receive Date: 20140812
  Receipt Date: 20140812
  Transmission Date: 20150326
  Serious: Yes (Other)
  Sender: FDA-Public Use
  Company Number: None

PATIENT
  Age: 53 Year
  Sex: Female
  Weight: 88 kg

DRUGS (9)
  1. OXALIPLATIN. [Concomitant]
     Active Substance: OXALIPLATIN
  2. DEXAMETHASONE. [Concomitant]
     Active Substance: DEXAMETHASONE
  3. FOSAPREPITENT [Concomitant]
  4. LEUCOVORIN [Concomitant]
     Active Substance: LEUCOVORIN
  5. FLUOROURACIL. [Concomitant]
     Active Substance: FLUOROURACIL
  6. HYDROCORTISONE. [Concomitant]
     Active Substance: HYDROCORTISONE
  7. DIPHENHYDRAMINE [Concomitant]
     Active Substance: DIPHENHYDRAMINE
  8. IRINOTECAN [Suspect]
     Active Substance: IRINOTECAN
     Indication: PANCREATIC CARCINOMA
     Dosage: EVERY 14 DAYS
     Route: 042
     Dates: start: 20140729, end: 20140729
  9. PALONOSETRON [Concomitant]
     Active Substance: PALONOSETRON

REACTIONS (5)
  - Muscle twitching [None]
  - Burning sensation [None]
  - Feeling hot [None]
  - Infusion related reaction [None]
  - Blepharospasm [None]

NARRATIVE: CASE EVENT DATE: 20140729
